FAERS Safety Report 22955023 (Version 5)
Quarter: 2024Q2

REPORT INFORMATION
  Report Type: Report from Study
  Country: PR (occurrence: PR)
  Receive Date: 20230918
  Receipt Date: 20240429
  Transmission Date: 20240716
  Serious: Yes (Hospitalization)
  Sender: FDA-Public Use
  Company Number: PR-PFIZER INC-202300280103

PATIENT
  Age: 54 Year
  Sex: Female
  Weight: 67.12 kg

DRUGS (10)
  1. IBRANCE [Suspect]
     Active Substance: PALBOCICLIB
     Indication: Breast cancer
     Dosage: 125 MG, DAILY 21 DAYS ON AND 7 DAYS OFF
     Route: 048
     Dates: start: 20220421
  2. IBRANCE [Suspect]
     Active Substance: PALBOCICLIB
     Dosage: 125 MG, DAILY 21 DAYS ON AND 7 DAYS OFF
     Route: 048
  3. IBRANCE [Suspect]
     Active Substance: PALBOCICLIB
     Dosage: UNK
  4. IBRANCE [Suspect]
     Active Substance: PALBOCICLIB
     Dosage: UNK UNK, 1 A DAY/FOR 21 DAYS
  5. IBRANCE [Suspect]
     Active Substance: PALBOCICLIB
     Dosage: 125 MG, 1-21 EVERY 28 DAYS
     Route: 048
     Dates: end: 20240412
  6. ANASTROZOLE [Concomitant]
     Active Substance: ANASTROZOLE
     Dosage: UNK
     Dates: start: 20231101
  7. AMARYL [Concomitant]
     Active Substance: GLIMEPIRIDE
     Dosage: UNK, DAILY (EVERY DAY)
  8. LOSARTAN [Concomitant]
     Active Substance: LOSARTAN
     Dosage: UNK, DAILY (EVERY DAY)
  9. FERROUS SULFATE [Concomitant]
     Active Substance: FERROUS SULFATE
     Dosage: UNK, DAILY (EVERY DAY)
  10. EXCEDRIN MIGRAINE [Concomitant]
     Active Substance: ACETAMINOPHEN\ASPIRIN\CAFFEINE
     Dosage: UNK, (SOMETIMES)

REACTIONS (6)
  - Lacrimal atrophy [Recovered/Resolved]
  - Headache [Not Recovered/Not Resolved]
  - Dizziness [Not Recovered/Not Resolved]
  - Constipation [Not Recovered/Not Resolved]
  - Fatigue [Not Recovered/Not Resolved]
  - Asthenia [Not Recovered/Not Resolved]

NARRATIVE: CASE EVENT DATE: 20230801
